FAERS Safety Report 13334566 (Version 1)
Quarter: 2017Q1

REPORT INFORMATION
  Report Type: Spontaneous
  Country: US (occurrence: US)
  Receive Date: 20170314
  Receipt Date: 20170314
  Transmission Date: 20170428
  Serious: No
  Sender: FDA-Public Use
  Company Number: US-JNJFOC-20170309606

PATIENT
  Sex: Female

DRUGS (1)
  1. IMBRUVICA [Suspect]
     Active Substance: IBRUTINIB
     Indication: CHRONIC LYMPHOCYTIC LEUKAEMIA
     Route: 065
     Dates: start: 2016

REACTIONS (5)
  - Urticaria [Unknown]
  - Wound secretion [Unknown]
  - Pyrexia [Unknown]
  - Peripheral swelling [Unknown]
  - Allergy to arthropod bite [Not Recovered/Not Resolved]
